FAERS Safety Report 10165367 (Version 1)
Quarter: 2014Q2

REPORT INFORMATION
  Report Type: Spontaneous
  Country: US (occurrence: US)
  Receive Date: 20140510
  Receipt Date: 20140510
  Transmission Date: 20141212
  Serious: No
  Sender: FDA-Public Use
  Company Number: US-BRISTOL-MYERS SQUIBB COMPANY-20415949

PATIENT
  Age: 83 Year
  Sex: Male
  Weight: 99.77 kg

DRUGS (5)
  1. BYDUREON [Suspect]
     Route: 058
     Dates: start: 201312
  2. LEVEMIR [Suspect]
     Dosage: 1DF:22UNITS
  3. LIPITOR [Concomitant]
  4. LISINOPRIL [Concomitant]
  5. BYSTOLIC [Concomitant]

REACTIONS (4)
  - Night sweats [Unknown]
  - Asthenia [Unknown]
  - Fatigue [Unknown]
  - Blood glucose decreased [Recovered/Resolved]
